FAERS Safety Report 6083898-3 (Version None)
Quarter: 2009Q1

REPORT INFORMATION
  Report Type: 
  Country: None (occurrence: None)
  Receive Date: 20090219
  Receipt Date: 20090209
  Transmission Date: 20090719
  Serious: Yes (Other)
  Sender: FDA-Public Use
  Company Number: US-AVENTIS-200818446US

PATIENT
  Sex: Female
  Weight: 65.7 kg

DRUGS (19)
  1. LOVENOX [Suspect]
     Route: 058
     Dates: start: 20070816, end: 20080206
  2. MIRALAX [Concomitant]
     Indication: LAXATIVE SUPPORTIVE CARE
     Dates: start: 20070801, end: 20081021
  3. LEXAPRO [Concomitant]
     Dosage: DOSE: UNK
  4. GEODON                             /01487002/ [Concomitant]
  5. LOPRESSOR [Concomitant]
     Indication: TACHYCARDIA
     Dates: start: 20070801, end: 20081021
  6. DITROPAN [Concomitant]
     Dosage: DOSE: UNK
  7. POTASSIUM CHLORIDE [Concomitant]
     Dates: start: 20070801, end: 20081021
  8. PREVACID [Concomitant]
     Indication: PROPHYLAXIS
     Dates: start: 20070801, end: 20081021
  9. EFFEXOR [Concomitant]
     Indication: DEPRESSION
     Dates: start: 20070801, end: 20081021
  10. MULTIVITAMINS WITH IRON            /02170101/ [Concomitant]
     Dosage: DOSE: UNK
     Dates: start: 20070801, end: 20081021
  11. SEROQUEL [Concomitant]
     Dosage: DOSE: UNK
  12. DESYREL [Concomitant]
     Dosage: DOSE: UNK
  13. MACROBID                           /00024401/ [Concomitant]
     Dates: start: 20070801, end: 20081021
  14. NYSTATIN [Concomitant]
     Indication: ORAL FUNGAL INFECTION
     Dosage: DOSE: 100,000 U SWISH AND SWALLOW
     Dates: start: 20070801, end: 20081021
  15. TYLENOL [Concomitant]
     Dosage: DOSE: UNK
  16. ATIVAN [Concomitant]
     Dosage: DOSE: UNK
  17. XANAX [Concomitant]
     Dosage: DOSE: UNK
  18. OXYBUTYNIN CHLORIDE [Concomitant]
     Dates: start: 20070801, end: 20081021
  19. PROTEIN SUPPLEMENT [Concomitant]
     Indication: NUTRITIONAL SUPPORT
     Dosage: DOSE: 1 PACKET IN 8 OZ WATER
     Dates: start: 20070801, end: 20081021

REACTIONS (1)
  - RESPIRATORY FAILURE [None]
